FAERS Safety Report 24836947 (Version 1)
Quarter: 2025Q1

REPORT INFORMATION
  Report Type: Spontaneous
  Country: US (occurrence: None)
  Receive Date: 20250110
  Receipt Date: 20250110
  Transmission Date: 20250409
  Serious: No
  Sender: FDA-CTU
  Company Number: None

PATIENT
  Sex: Female

DRUGS (1)
  1. XDEMVY [Suspect]
     Active Substance: LOTILANER
     Dosage: 1 GTT DROP TRWICE A DAY OPHTHALMIC ?
     Route: 047
     Dates: start: 20250108, end: 20250110

REACTIONS (4)
  - Eye pain [None]
  - Ocular hyperaemia [None]
  - Eye swelling [None]
  - Lacrimation increased [None]
